FAERS Safety Report 8375556-7 (Version None)
Quarter: 2012Q1

REPORT INFORMATION
  Report Type: 
  Country: None (occurrence: None)
  Receive Date: 20120323
  Receipt Date: 20110131
  Transmission Date: 20120608
  Serious: Yes (Other)
  Sender: FDA-Public Use
  Company Number: 163-21880-11020406

PATIENT
  Age: 50 Year
  Sex: Male
  Weight: 88.17 kg

DRUGS (3)
  1. WARFARIN SODIUM [Concomitant]
  2. REVLIMID [Suspect]
     Indication: MULTIPLE MYELOMA
     Dosage: 25 MG, 1 IN 1 D, PO, 25 MG, DAILY FOR 21 DAYS, PO
     Route: 048
     Dates: start: 20090801
  3. REVLIMID [Suspect]
     Indication: MULTIPLE MYELOMA
     Dosage: 25 MG, 1 IN 1 D, PO, 25 MG, DAILY FOR 21 DAYS, PO
     Route: 048
     Dates: start: 20100119

REACTIONS (1)
  - THROMBOSIS [None]
